FAERS Safety Report 9734800 (Version 2)
Quarter: 2014Q1

REPORT INFORMATION
  Report Type: Spontaneous
  Country: IE (occurrence: IE)
  Receive Date: 20131206
  Receipt Date: 20140124
  Transmission Date: 20141002
  Serious: Yes (Hospitalization, Other)
  Sender: FDA-Public Use
  Company Number: IE-AMGEN-IRLSP2013084820

PATIENT
  Age: 64 Year
  Sex: Female

DRUGS (5)
  1. PROLIA [Suspect]
     Indication: OSTEOPOROSIS
     Dosage: 60 MG, Q6MO
     Route: 058
     Dates: start: 20121218
  2. ACERYCAL [Concomitant]
     Indication: BLOOD PRESSURE
     Dosage: UNK UNK, QD
     Route: 048
     Dates: start: 201107, end: 201306
  3. ASA [Concomitant]
     Indication: THROMBOSIS PROPHYLAXIS
     Dosage: 75 MG, QD
     Route: 048
     Dates: start: 200807
  4. CALCICHEW D3 APELSIN [Concomitant]
     Indication: OSTEOPOROSIS
     Dosage: UNK UNK, BID
     Route: 048
     Dates: start: 201212, end: 201303
  5. ARCOXIA [Concomitant]
     Indication: INFLAMMATION
     Dosage: 90 MG, QD
     Route: 048
     Dates: start: 201212, end: 201307

REACTIONS (1)
  - Dysphagia [Recovered/Resolved]
